FAERS Safety Report 20178381 (Version 1)
Quarter: 2021Q4

REPORT INFORMATION
  Report Type: Report from Study
  Country: AR (occurrence: AR)
  Receive Date: 20211213
  Receipt Date: 20211213
  Transmission Date: 20220304
  Serious: Yes (Other)
  Sender: FDA-Public Use
  Company Number: AR-ABBVIE-21K-007-4188638-00

PATIENT
  Age: 71 Year
  Sex: Male

DRUGS (2)
  1. VENCLEXTA [Suspect]
     Active Substance: VENETOCLAX
     Indication: Chronic lymphocytic leukaemia
     Route: 048
  2. OBINUTUZUMAB [Suspect]
     Active Substance: OBINUTUZUMAB
     Indication: Chronic lymphocytic leukaemia
     Route: 065

REACTIONS (8)
  - Splenomegaly [Unknown]
  - Infection [Recovered/Resolved]
  - Cellulitis [Recovered/Resolved]
  - Pneumonia [Unknown]
  - White blood cell count abnormal [Unknown]
  - Hypogammaglobulinaemia [Unknown]
  - Cellulitis [Unknown]
  - Unevaluable event [Unknown]
